FAERS Safety Report 12137001 (Version 1)
Quarter: 2016Q1

REPORT INFORMATION
  Report Type: Spontaneous
  Country: US (occurrence: US)
  Receive Date: 20160302
  Receipt Date: 20160302
  Transmission Date: 20160526
  Serious: No
  Sender: FDA-Public Use
  Company Number: US-PERRIGO-15US008331

PATIENT
  Age: 92 Year
  Sex: Female
  Weight: 45.35 kg

DRUGS (1)
  1. LOPERAMIDE HYDROCHLORIDE. [Suspect]
     Active Substance: LOPERAMIDE HYDROCHLORIDE
     Indication: FUNCTIONAL GASTROINTESTINAL DISORDER
     Dosage: 4 MG, QD
     Route: 048
     Dates: start: 201507

REACTIONS (3)
  - No adverse event [Unknown]
  - Off label use [Unknown]
  - Incorrect drug administration duration [Unknown]

NARRATIVE: CASE EVENT DATE: 201507
